FAERS Safety Report 6573541-9 (Version None)
Quarter: 2010Q1

REPORT INFORMATION
  Report Type: 
  Country: None (occurrence: None)
  Receive Date: 20100208
  Receipt Date: 20100126
  Transmission Date: 20100710
  Serious: Yes (Hospitalization, Other)
  Sender: FDA-Public Use
  Company Number: US-ROCHE-661422

PATIENT
  Sex: Female

DRUGS (3)
  1. ACCUTANE [Suspect]
     Indication: ACNE
     Dosage: FIRST COURSE
     Route: 065
     Dates: start: 19880101
  2. ACCUTANE [Suspect]
     Dosage: SECOND COURSE
     Route: 065
     Dates: start: 19890101
  3. CLEOCIN [Concomitant]
     Indication: ACNE

REACTIONS (7)
  - ANAL ABSCESS [None]
  - ANAL FISTULA [None]
  - ANAL STENOSIS [None]
  - COLITIS ULCERATIVE [None]
  - CROHN'S DISEASE [None]
  - INFLAMMATORY BOWEL DISEASE [None]
  - OSTEONECROSIS [None]
